FAERS Safety Report 24210263 (Version 1)
Quarter: 2024Q3

REPORT INFORMATION
  Report Type: Spontaneous
  Country: US (occurrence: US)
  Receive Date: 20240814
  Receipt Date: 20240814
  Transmission Date: 20241017
  Serious: No
  Sender: PFIZER
  Company Number: US-PFIZER INC-202400234398

PATIENT
  Age: 44 Year
  Sex: Male

DRUGS (1)
  1. PAXLOVID [Suspect]
     Active Substance: NIRMATRELVIR\RITONAVIR
     Indication: COVID-19 treatment
     Dosage: 100 MG, 2X/DAY
     Dates: start: 20240729, end: 20240803

REACTIONS (4)
  - Incorrect dose administered [Unknown]
  - Dizziness [Unknown]
  - Dehydration [Unknown]
  - Productive cough [Unknown]

NARRATIVE: CASE EVENT DATE: 20240729
